FAERS Safety Report 6697629-7 (Version None)
Quarter: 2010Q2

REPORT INFORMATION
  Report Type: 
  Country: None (occurrence: None)
  Receive Date: 20100423
  Receipt Date: 20100409
  Transmission Date: 20101027
  Serious: Yes (Other)
  Sender: FDA-Public Use
  Company Number: 2010S1001827

PATIENT
  Age: 61 Year
  Sex: Female

DRUGS (19)
  1. PHOSPHOSODA FLAVOR NOT SPECIFIED [Suspect]
     Dosage: ;PO
     Route: 048
     Dates: start: 20070322, end: 20070323
  2. PHOSPHOSODA FLAVOR NOT SPECIFIED [Suspect]
     Indication: COLONOSCOPY
     Dosage: ;PO
     Route: 048
     Dates: start: 20100415, end: 20100416
  3. NITROGLYCERIN [Concomitant]
  4. TRAZODONE HCL [Concomitant]
  5. MAGNESIUM OXIDE [Concomitant]
  6. LEXAPRO [Concomitant]
  7. CRESTOR [Concomitant]
  8. GABAPENTIN [Concomitant]
  9. INSULIN [Concomitant]
  10. NOVOLIN 70/30 [Concomitant]
  11. PRILOSEC [Concomitant]
  12. SUCRALFATE [Concomitant]
  13. ASPIRIN [Concomitant]
  14. OXYCONTIN [Concomitant]
  15. AUGMENTIN '125' [Concomitant]
  16. TYLENOL (CAPLET) [Concomitant]
  17. BENADRYL [Concomitant]
  18. REPLEVA [Concomitant]
  19. SODIUM BICARBONATE [Concomitant]

REACTIONS (5)
  - CREATININE URINE INCREASED [None]
  - GLOMERULAR FILTRATION RATE ABNORMAL [None]
  - HAEMODIALYSIS [None]
  - INJURY [None]
  - RENAL DISORDER [None]
